FAERS Safety Report 14579364 (Version 1)
Quarter: 2018Q1

REPORT INFORMATION
  Report Type: Spontaneous
  Country: US (occurrence: US)
  Receive Date: 20180227
  Receipt Date: 20180227
  Transmission Date: 20180509
  Serious: No
  Sender: FDA-Public Use
  Company Number: US-SA-2018SA044756

PATIENT
  Sex: Female

DRUGS (2)
  1. SOLIQUA 100/33 [Suspect]
     Active Substance: INSULIN GLARGINE\LIXISENATIDE
     Route: 065
     Dates: end: 2017
  2. SOLOSTAR [Suspect]
     Active Substance: DEVICE
     Dates: end: 2017

REACTIONS (1)
  - Nausea [Unknown]
